FAERS Safety Report 10027954 (Version 2)
Quarter: 2014Q2

REPORT INFORMATION
  Report Type: Spontaneous
  Country: IE (occurrence: IE)
  Receive Date: 20140321
  Receipt Date: 20140415
  Transmission Date: 20141212
  Serious: Yes (Hospitalization, Other)
  Sender: FDA-Public Use
  Company Number: IE-BAYER-2014-038800

PATIENT
  Age: 33 Year
  Sex: Female

DRUGS (3)
  1. NIFEDIPINE [Suspect]
     Indication: PRE-ECLAMPSIA
  2. NIFEDIPINE [Suspect]
     Indication: HYPERTENSION
  3. LABETALOL [Concomitant]

REACTIONS (5)
  - Hypertension [None]
  - Premature delivery [None]
  - Exposure during pregnancy [None]
  - Proteinuria [None]
  - Umbilical cord vascular disorder [None]
